FAERS Safety Report 5977517-1 (Version None)
Quarter: 2008Q4

REPORT INFORMATION
  Report Type: 
  Country: None (occurrence: None)
  Receive Date: 20081201
  Receipt Date: 20081201
  Transmission Date: 20090506
  Serious: Yes (Other)
  Sender: FDA-Public Use
  Company Number: None

PATIENT
  Age: 51 Year
  Sex: Female
  Weight: 95.2554 kg

DRUGS (1)
  1. SIMVASTATIN [Suspect]
     Indication: BLOOD CHOLESTEROL INCREASED
     Dosage: 40 MG  EVERY DAY PO
     Route: 048
     Dates: start: 20081111, end: 20081128

REACTIONS (5)
  - ARTHRALGIA [None]
  - ASTHENIA [None]
  - FEELING ABNORMAL [None]
  - INSOMNIA [None]
  - MUSCLE DISORDER [None]
